FAERS Safety Report 19402458 (Version 2)
Quarter: 2021Q2

REPORT INFORMATION
  Report Type: Spontaneous
  Country: US (occurrence: US)
  Receive Date: 20210610
  Receipt Date: 20210610
  Transmission Date: 20210717
  Serious: Yes (Other)
  Sender: FDA-Public Use
  Company Number: US-CELGENEUS-USA-20210601366

PATIENT
  Sex: Male

DRUGS (1)
  1. REVLIMID [Suspect]
     Active Substance: LENALIDOMIDE
     Indication: MANTLE CELL LYMPHOMA
     Dosage: 10 MILLIGRAM
     Route: 048
     Dates: start: 202105

REACTIONS (4)
  - Unevaluable event [Unknown]
  - Spinal cord injury [Unknown]
  - Transfusion related complication [Unknown]
  - Constipation [Unknown]

NARRATIVE: CASE EVENT DATE: 2021
